FAERS Safety Report 7491609-X (Version None)
Quarter: 2011Q2

REPORT INFORMATION
  Report Type: 
  Country: None (occurrence: None)
  Receive Date: 20110519
  Receipt Date: 20110517
  Transmission Date: 20111010
  Serious: Yes (Death)
  Sender: FDA-Public Use
  Company Number: CO-PFIZER INC-2011106672

PATIENT
  Age: 83 Year
  Sex: Male

DRUGS (1)
  1. CARDURA [Suspect]
     Dosage: 4 MG, UNK
     Route: 048

REACTIONS (1)
  - DEATH [None]
